FAERS Safety Report 7806369-X (Version None)
Quarter: 2011Q4

REPORT INFORMATION
  Report Type: 
  Country: None (occurrence: None)
  Receive Date: 20111011
  Receipt Date: 20111004
  Transmission Date: 20120403
  Serious: Yes (Hospitalization)
  Sender: FDA-Public Use
  Company Number: US-GILEAD-2011-0043435

PATIENT

DRUGS (1)
  1. LETAIRIS [Suspect]
     Indication: PULMONARY HYPERTENSION
     Route: 048
     Dates: start: 20090925

REACTIONS (6)
  - RESPIRATORY DISORDER [None]
  - HYPOTENSION [None]
  - LOCALISED INTRAABDOMINAL FLUID COLLECTION [None]
  - DIALYSIS [None]
  - HYPERTENSION [None]
  - UNRESPONSIVE TO STIMULI [None]
